FAERS Safety Report 26187147 (Version 1)
Quarter: 2025Q4

REPORT INFORMATION
  Report Type: Spontaneous
  Country: EU (occurrence: EU)
  Receive Date: 20251222
  Receipt Date: 20251222
  Transmission Date: 20260118
  Serious: Yes (Hospitalization, Other)
  Sender: BRISTOL-MYERS SQUIBB COMPANY
  Company Number: EU-BRISTOL-MYERS SQUIBB COMPANY-2025-170642

PATIENT
  Age: 63 Year
  Sex: Male

DRUGS (5)
  1. IPILIMUMAB [Suspect]
     Active Substance: IPILIMUMAB
     Indication: Non-small cell lung cancer
     Dates: start: 20230922, end: 202501
  2. NIVOLUMAB [Suspect]
     Active Substance: NIVOLUMAB
     Indication: Non-small cell lung cancer
     Dates: start: 20230922, end: 202501
  3. CARBOPLATIN [Concomitant]
     Active Substance: CARBOPLATIN
     Indication: Chemotherapy
     Dosage: CARBOPLATIN (AUC 6) EVERY 3 WEEKS -2 CYCLES
  4. PACLITAXEL [Concomitant]
     Active Substance: PACLITAXEL
     Indication: Chemotherapy
     Dosage: PACLITAXEL 200 MG/M2 IV EVERY 3 WEEKS -2 CYCLES
     Route: 042
  5. UNSPECIFIED INGREDIENT [Concomitant]
     Active Substance: UNSPECIFIED INGREDIENT
     Indication: Product used for unknown indication

REACTIONS (5)
  - Hydronephrosis [Unknown]
  - Hypothyroidism [Unknown]
  - Urosepsis [Unknown]
  - Nephrolithiasis [Unknown]
  - Blood glucose increased [Unknown]
